FAERS Safety Report 16186540 (Version 1)
Quarter: 2019Q2

REPORT INFORMATION
  Report Type: Report from Study
  Country: US (occurrence: US)
  Receive Date: 20190411
  Receipt Date: 20190411
  Transmission Date: 20190711
  Serious: Yes (Hospitalization)
  Sender: FDA-Public Use
  Company Number: US-EISAI MEDICAL RESEARCH-EC-2019-053087

PATIENT
  Age: 79 Year
  Sex: Male
  Weight: 68 kg

DRUGS (14)
  1. LANTUS SOLOSTAR [Concomitant]
     Active Substance: INSULIN GLARGINE
  2. IMODIUM A-D [Concomitant]
     Active Substance: LOPERAMIDE HYDROCHLORIDE
  3. CALCIUM + D3 [Concomitant]
     Active Substance: CALCIUM\CHOLECALCIFEROL
  4. LENVIMA [Suspect]
     Active Substance: LENVATINIB
     Indication: HEPARIN-INDUCED THROMBOCYTOPENIA
  5. POTASSIUM [Concomitant]
     Active Substance: POTASSIUM
  6. LEVOXYL [Concomitant]
     Active Substance: LEVOTHYROXINE SODIUM
  7. AMLODIPINE BESYLATE. [Concomitant]
     Active Substance: AMLODIPINE BESYLATE
  8. LENVIMA [Suspect]
     Active Substance: LENVATINIB
     Indication: THYROID CANCER
     Route: 048
     Dates: start: 20190222, end: 20190330
  9. LENVIMA [Suspect]
     Active Substance: LENVATINIB
     Indication: EMBOLISM VENOUS
  10. CALCITRIOL. [Concomitant]
     Active Substance: CALCITRIOL
  11. LASIX [Concomitant]
     Active Substance: FUROSEMIDE
  12. METFORMIN ER [Concomitant]
     Active Substance: METFORMIN HYDROCHLORIDE
  13. METOPROLOL SUCCINATE. [Concomitant]
     Active Substance: METOPROLOL SUCCINATE
  14. IRON [Concomitant]
     Active Substance: IRON

REACTIONS (7)
  - Tracheostomy malfunction [Unknown]
  - Colitis [Unknown]
  - Diarrhoea [Not Recovered/Not Resolved]
  - Medical device site irritation [Unknown]
  - Renal impairment [Unknown]
  - Nausea [Not Recovered/Not Resolved]
  - Blood calcium decreased [Unknown]

NARRATIVE: CASE EVENT DATE: 2019
